FAERS Safety Report 16544068 (Version 1)
Quarter: 2019Q3

REPORT INFORMATION
  Report Type: Spontaneous
  Country: US (occurrence: US)
  Receive Date: 20190528
  Receipt Date: 20190528
  Transmission Date: 20191004
  Serious: Yes (Other)
  Sender: FDA-Public Use
  Company Number: None

PATIENT
  Age: 75 Year
  Sex: Male
  Weight: 95.25 kg

DRUGS (1)
  1. DULOXETINE HCL 30MG CPEP [Suspect]
     Active Substance: DULOXETINE HYDROCHLORIDE
     Indication: DEPRESSION
     Dates: start: 20190115, end: 20190116

REACTIONS (5)
  - Burning sensation [None]
  - Dyspepsia [None]
  - Eye irritation [None]
  - Neuropathy peripheral [None]
  - Agitation [None]

NARRATIVE: CASE EVENT DATE: 20190115
